FAERS Safety Report 25241931 (Version 1)
Quarter: 2025Q2

REPORT INFORMATION
  Report Type: Report from Study
  Country: FR (occurrence: FR)
  Receive Date: 20250426
  Receipt Date: 20250426
  Transmission Date: 20250716
  Serious: Yes (Death, Other)
  Sender: AUROBINDO
  Company Number: FR-AUROBINDO-AUR-APL-2018-000082

PATIENT
  Age: 79 Year
  Sex: Male

DRUGS (9)
  1. CIPROFLOXACIN [Suspect]
     Active Substance: CIPROFLOXACIN
     Indication: Bordetella infection
     Route: 065
     Dates: start: 2014
  2. IMIPENEM [Suspect]
     Active Substance: IMIPENEM
     Indication: Bordetella infection
  3. IMIPENEM [Suspect]
     Active Substance: IMIPENEM
  4. IMIPENEM [Suspect]
     Active Substance: IMIPENEM
  5. AMIKACIN [Suspect]
     Active Substance: AMIKACIN
     Indication: Bordetella infection
     Route: 065
     Dates: start: 2014
  6. SULFAMETHOXAZOLE AND TRIMETHOPRIM [Suspect]
     Active Substance: SULFAMETHOXAZOLE\TRIMETHOPRIM
     Indication: Bordetella infection
     Route: 065
  7. CILASTATIN SODIUM\IMIPENEM [Suspect]
     Active Substance: CILASTATIN SODIUM\IMIPENEM
     Indication: Bordetella infection
     Route: 065
     Dates: start: 2014
  8. RITUXIMAB [Concomitant]
     Active Substance: RITUXIMAB
     Indication: Waldenstrom^s macroglobulinaemia
     Route: 065
  9. RITUXIMAB [Concomitant]
     Active Substance: RITUXIMAB
     Route: 065

REACTIONS (1)
  - Drug ineffective [Fatal]
